FAERS Safety Report 11082444 (Version 1)
Quarter: 2015Q2

REPORT INFORMATION
  Report Type: Report from Study
  Country: CZ (occurrence: CZ)
  Receive Date: 20150501
  Receipt Date: 20150501
  Transmission Date: 20150821
  Serious: Yes (Hospitalization)
  Sender: FDA-Public Use
  Company Number: CZ-AMGEN-2012-0141

PATIENT
  Age: 72 Year
  Sex: Female
  Weight: 52 kg

DRUGS (29)
  1. CARFILZOMIB [Suspect]
     Active Substance: CARFILZOMIB
     Indication: PLASMA CELL MYELOMA
     Dosage: FREQ. TEXT: DAYS 1, 2
     Route: 042
     Dates: start: 20110523, end: 20110524
  2. LENALIDOMIDE [Suspect]
     Active Substance: LENALIDOMIDE
     Indication: PLASMA CELL MYELOMA
     Dosage: FREQUENCY: 21 EVERY 28 DAYS; FREQ. TEXT: DAYS 1-21, EVERY 28 DAYS
     Route: 048
     Dates: start: 20110523, end: 20120211
  3. HERPESIN [Concomitant]
     Indication: ANTIVIRAL PROPHYLAXIS
     Route: 048
     Dates: start: 20110522
  4. TRANSTEC [Concomitant]
     Active Substance: BUPRENORPHINE
     Indication: BACK PAIN
     Route: 062
     Dates: start: 20090427
  5. 7,5% KALIUM CHLORATUM [Concomitant]
     Indication: HYPOKALAEMIA
     Route: 042
     Dates: start: 20120206, end: 20120207
  6. DALACIN [Concomitant]
     Active Substance: CLINDAMYCIN\CLINDAMYCIN PHOSPHATE
     Indication: OSTEONECROSIS
     Route: 048
     Dates: start: 20110926
  7. 8,7% NA2HPO4 [Concomitant]
     Indication: HYPOPHOSPHATAEMIA
     Route: 042
     Dates: start: 20120206, end: 20120206
  8. VEROSPIRON [Concomitant]
     Active Substance: SPIRONOLACTONE
     Indication: HYPERTENSION
     Route: 048
     Dates: start: 20120102
  9. CALTRATE [Concomitant]
     Active Substance: CALCIUM CARBONATE
     Indication: PROPHYLAXIS
     Route: 048
     Dates: start: 20110509
  10. DETRALEX [Concomitant]
     Active Substance: DIOSMIN\HESPERIDIN
     Indication: PULMONARY EMBOLISM
     Route: 048
     Dates: start: 20110211
  11. LEXAURIN [Concomitant]
     Active Substance: BROMAZEPAM
     Indication: PROPHYLAXIS
     Route: 048
     Dates: start: 20110509
  12. MEGACE SUSP [Concomitant]
     Indication: PROPHYLAXIS
     Route: 048
     Dates: start: 20110912
  13. DEXAMETHASONE. [Suspect]
     Active Substance: DEXAMETHASONE
     Indication: PLASMA CELL MYELOMA
     Dosage: FREQUENCY: 4 EVERY 21 DAYS; FREQ. TEXT: DAYS 1, 8, 15, 22, EVERY 28 DAYS
     Route: 065
     Dates: start: 20110523
  14. 7,5% KALIUM CHLORATUM [Concomitant]
     Route: 042
     Dates: start: 20120110, end: 20120131
  15. 7,5% KALIUM CHLORATUM [Concomitant]
     Indication: PROPHYLAXIS
     Route: 042
     Dates: start: 20120206, end: 20120207
  16. 8,7% NA2HPO4 [Concomitant]
     Indication: PROPHYLAXIS
     Route: 042
     Dates: start: 20120206, end: 20120206
  17. FRAMYKOIN [Concomitant]
     Indication: SKIN ULCER
     Route: 061
     Dates: start: 20111205
  18. WARFARIN [Concomitant]
     Active Substance: WARFARIN
     Indication: THROMBOSIS PROPHYLAXIS
     Route: 048
     Dates: start: 20090812
  19. CARFILZOMIB [Suspect]
     Active Substance: CARFILZOMIB
     Dosage: FREQUENCY: 4 EVERY 21 DAYS; FREQ. TEXT: DAYS 8, 9, 15, 16
     Route: 042
     Dates: start: 20110530, end: 20110607
  20. LANSOPRAZOLE. [Concomitant]
     Active Substance: LANSOPRAZOLE
     Indication: PROPHYLAXIS
     Route: 048
     Dates: start: 20110522
  21. 8,7% NA2HPO4 [Concomitant]
     Route: 042
     Dates: start: 20120110, end: 20120131
  22. CARFILZOMIB [Suspect]
     Active Substance: CARFILZOMIB
     Dosage: FREQUENCY: 6 EVERY 28 DAYS; FREQ. TEXT: DAYS 1, 2, 8, 9, 15, 16
     Route: 042
     Dates: start: 20120130
  23. PARALEN [Concomitant]
     Active Substance: ACETAMINOPHEN
     Indication: BACK PAIN
     Route: 048
     Dates: start: 20100820
  24. 8,7% NA2HPO4 [Concomitant]
     Route: 042
     Dates: start: 20110207, end: 20110207
  25. REMERON [Concomitant]
     Active Substance: MIRTAZAPINE
     Indication: DEPRESSION
     Route: 048
     Dates: start: 200904
  26. CARFILZOMIB [Suspect]
     Active Substance: CARFILZOMIB
     Dosage: FREQUENCY: 6 EVERY 28 DAYS; FREQ. TEXT: DAYS 1, 2, 8, 9, 15, 16
     Route: 042
     Dates: start: 20110620, end: 20120117
  27. MODURETIC 5-50 [Concomitant]
     Active Substance: AMILORIDE HYDROCHLORIDE\HYDROCHLOROTHIAZIDE
     Indication: HYPERTENSION
     Route: 048
     Dates: start: 20110923
  28. CERUCAL [Concomitant]
     Indication: NAUSEA
     Route: 048
     Dates: start: 20110919
  29. KALNORMIN [Concomitant]
     Active Substance: POTASSIUM CHLORIDE
     Indication: HYPOKALAEMIA
     Route: 048
     Dates: start: 20110621

REACTIONS (1)
  - Altered state of consciousness [Recovered/Resolved]

NARRATIVE: CASE EVENT DATE: 20120214
